FAERS Safety Report 14639919 (Version 1)
Quarter: 2018Q1

REPORT INFORMATION
  Report Type: Spontaneous
  Country: US (occurrence: US)
  Receive Date: 20180314
  Receipt Date: 20180314
  Transmission Date: 20180509
  Serious: Yes (Hospitalization)
  Sender: FDA-Public Use
  Company Number: None

PATIENT
  Age: 62 Year
  Sex: Male

DRUGS (12)
  1. SLO-NIACIN TAB 250MG CR [Concomitant]
  2. DOXAZOSIN TAB 8MG [Concomitant]
  3. LANSOPRAZOLE CAP 30MG DR [Concomitant]
  4. TYLENOL 8 HR TAB 650MG [Concomitant]
  5. ADVIL [Concomitant]
     Active Substance: IBUPROFEN
  6. LANSOPRAZOLE CAP 15MG DR [Concomitant]
  7. VITAMIN D3 CAP 2000 UNIT [Concomitant]
  8. DOXAZOSIN TAB 8MG [Concomitant]
  9. HUMIRA [Suspect]
     Active Substance: ADALIMUMAB
     Indication: CROHN^S DISEASE
     Route: 058
     Dates: start: 20170830
  10. ASPIRIN-81 CHW [Concomitant]
  11. DOXAZOSIN TAB [Concomitant]
  12. LANSOPRAZOLE CAP 30MG DR [Concomitant]

REACTIONS (1)
  - Intestinal obstruction [None]

NARRATIVE: CASE EVENT DATE: 20180215
